FAERS Safety Report 7162564-7 (Version None)
Quarter: 2010Q4

REPORT INFORMATION
  Report Type: 
  Country: None (occurrence: None)
  Receive Date: 20101215
  Receipt Date: 20091123
  Transmission Date: 20110411
  Serious: Yes (Other)
  Sender: FDA-Public Use
  Company Number: US-PFIZER INC-2009276850

PATIENT
  Age: 49 Year
  Sex: Male
  Weight: 69.841 kg

DRUGS (12)
  1. LYRICA [Suspect]
     Indication: PAIN
     Dosage: 75 MG, 2X/DAY
     Route: 048
     Dates: start: 20070201, end: 20091001
  2. LYRICA [Suspect]
     Indication: FIBROMYALGIA
  3. ROCEPHIN [Concomitant]
     Dosage: UNK
  4. ATIVAN [Concomitant]
     Dosage: UNK
  5. PERCOCET [Concomitant]
     Dosage: UNK
  6. ZANAFLEX [Concomitant]
     Dosage: UNK
  7. PROMETHAZINE [Concomitant]
     Dosage: UNK
  8. ZOVIRAX [Concomitant]
     Dosage: UNK
  9. PRILOSEC [Concomitant]
     Dosage: UNK
  10. SEROQUEL [Concomitant]
     Dosage: UNK
  11. FISH OIL [Concomitant]
     Dosage: UNK
  12. METRONIDAZOLE [Concomitant]
     Dosage: UNK

REACTIONS (11)
  - ABNORMAL BEHAVIOUR [None]
  - AGGRESSION [None]
  - ANGER [None]
  - DYSGRAPHIA [None]
  - HERPES ZOSTER [None]
  - IMPULSIVE BEHAVIOUR [None]
  - INSOMNIA [None]
  - LOGORRHOEA [None]
  - LUNG DISORDER [None]
  - NERVOUS SYSTEM DISORDER [None]
  - VISION BLURRED [None]
